FAERS Safety Report 21861607 (Version 1)
Quarter: 2023Q1

REPORT INFORMATION
  Report Type: Spontaneous
  Country: US (occurrence: US)
  Receive Date: 20230113
  Receipt Date: 20230113
  Transmission Date: 20230417
  Serious: Yes (Other)
  Sender: FDA-Public Use
  Company Number: US-Amarin Pharma, Inc.-2023AMR000012

PATIENT
  Age: 68 Year
  Sex: Male
  Weight: 115.67 kg

DRUGS (14)
  1. VASCEPA [Suspect]
     Active Substance: ICOSAPENT ETHYL
     Indication: Blood triglycerides
     Dosage: 2 CAPSULES IN AM AND 2 IN PM
     Route: 048
     Dates: end: 202301
  2. LIPITOR [Concomitant]
     Active Substance: ATORVASTATIN CALCIUM
     Indication: Blood cholesterol abnormal
  3. CARVEDILOL [Concomitant]
     Active Substance: CARVEDILOL
     Indication: Product used for unknown indication
  4. LISINOPRIL [Concomitant]
     Active Substance: LISINOPRIL
     Indication: Product used for unknown indication
  5. BYDUREON [Concomitant]
     Active Substance: EXENATIDE
     Indication: Diabetes mellitus
     Dosage: INJECTION
  6. CORLANOR [Concomitant]
     Active Substance: IVABRADINE HYDROCHLORIDE
     Indication: Heart rate
  7. METFORMIN [Concomitant]
     Active Substance: METFORMIN HYDROCHLORIDE
     Indication: Diabetes mellitus
  8. Low dose aspirin 81 [Concomitant]
     Indication: Product used for unknown indication
  9. VITAMINS [Concomitant]
     Active Substance: VITAMINS
     Indication: Product used for unknown indication
  10. VITAMIN C [Concomitant]
     Active Substance: ASCORBIC ACID
     Indication: Product used for unknown indication
  11. POTASSIUM [Concomitant]
     Active Substance: POTASSIUM
     Indication: Product used for unknown indication
  12. Calcium OTC [Concomitant]
     Indication: Product used for unknown indication
  13. ALLOPURINOL [Concomitant]
     Active Substance: ALLOPURINOL
     Indication: Gout
  14. OXYBUTYNIN [Concomitant]
     Active Substance: OXYBUTYNIN
     Indication: Hypertonic bladder

REACTIONS (5)
  - Knee arthroplasty [Unknown]
  - Hypertension [Unknown]
  - Poor quality product administered [Unknown]
  - Product odour abnormal [Unknown]
  - Product physical issue [Unknown]

NARRATIVE: CASE EVENT DATE: 20230101
